FAERS Safety Report 4630894-6 (Version None)
Quarter: 2005Q2

REPORT INFORMATION
  Report Type: 
  Country: None (occurrence: None)
  Receive Date: 20050406
  Receipt Date: 20050317
  Transmission Date: 20051028
  Serious: Yes (Other)
  Sender: FDA-Public Use
  Company Number: USA050393611

PATIENT
  Age: 55 Year
  Sex: Female

DRUGS (6)
  1. CYMBALTA [Suspect]
     Dosage: 60 MG
     Dates: start: 20050118, end: 20050317
  2. ZANAFLEX [Concomitant]
  3. PERCOCET [Concomitant]
  4. NEURONTIN (GABAPENTIN PFIZER) [Concomitant]
  5. SYNTHROID [Concomitant]
  6. GLOBICHTHOL MIT SULFONAMID [Concomitant]

REACTIONS (2)
  - CONVULSION [None]
  - LOSS OF CONSCIOUSNESS [None]
